FAERS Safety Report 15032047 (Version 1)
Quarter: 2018Q2

REPORT INFORMATION
  Report Type: Spontaneous
  Country: GR (occurrence: GR)
  Receive Date: 20180619
  Receipt Date: 20180619
  Transmission Date: 20180711
  Serious: Yes (Other)
  Sender: FDA-Public Use
  Company Number: GR-MYLANLABS-2018M1041914

PATIENT
  Age: 77 Year
  Sex: Male

DRUGS (2)
  1. CALCITONIN SALMON. [Suspect]
     Active Substance: CALCITONIN SALMON
     Indication: OSTEITIS DEFORMANS
     Route: 045
  2. ETIDRONATE [Suspect]
     Active Substance: ETIDRONATE DISODIUM
     Indication: OSTEITIS DEFORMANS
     Route: 065

REACTIONS (1)
  - Atypical femur fracture [Unknown]
